FAERS Safety Report 9271258 (Version 1)
Quarter: 2013Q2

REPORT INFORMATION
  Report Type: Spontaneous
  Country: AU (occurrence: AU)
  Receive Date: 20130506
  Receipt Date: 20130506
  Transmission Date: 20140414
  Serious: Yes (Hospitalization)
  Sender: FDA-Public Use
  Company Number: AU-ELI_LILLY_AND_COMPANY-AU201304006513

PATIENT
  Age: 3 Year
  Sex: Male
  Weight: 17 kg

DRUGS (1)
  1. HUMATROPE [Suspect]
     Dosage: 0.4MG DAILY
     Route: 058
     Dates: start: 20090429

REACTIONS (1)
  - Gastroenteritis salmonella [Recovered/Resolved]
